FAERS Safety Report 15533227 (Version 2)
Quarter: 2019Q3

REPORT INFORMATION
  Report Type: Spontaneous
  Country: US (occurrence: US)
  Receive Date: 20181019
  Receipt Date: 20190822
  Transmission Date: 20191004
  Serious: No
  Sender: FDA-Public Use
  Company Number: US-SA-2018SA285290

PATIENT
  Age: 66 Year
  Sex: Female

DRUGS (1)
  1. ZOLPIDEM TARTRATE EXTENDED RELEASE - WINTHROP [Suspect]
     Active Substance: ZOLPIDEM TARTRATE
     Dosage: 12.5 MG, HS
     Route: 065

REACTIONS (3)
  - Concussion [Unknown]
  - Drug level increased [Not Recovered/Not Resolved]
  - Contusion [Unknown]
